FAERS Safety Report 9386225 (Version 1)
Quarter: 2013Q3

REPORT INFORMATION
  Report Type: Report from Study
  Country: ZA (occurrence: ZA)
  Receive Date: 20130708
  Receipt Date: 20130708
  Transmission Date: 20140515
  Serious: Yes (Death)
  Sender: FDA-Public Use
  Company Number: ZA-ROCHE-1245125

PATIENT
  Age: 49 Year
  Sex: Female

DRUGS (3)
  1. MIRCERA [Suspect]
     Indication: PRODUCT USED FOR UNKNOWN INDICATION
     Route: 058
     Dates: start: 201007, end: 201305
  2. MIRCERA [Suspect]
     Route: 058
     Dates: start: 201002, end: 201007
  3. VENOFER [Concomitant]
     Route: 042

REACTIONS (1)
  - Death [Fatal]
